FAERS Safety Report 9317279 (Version 4)
Quarter: 2013Q3

REPORT INFORMATION
  Report Type: Spontaneous
  Country: US (occurrence: None)
  Receive Date: 20121218
  Receipt Date: 20130815
  Transmission Date: 20140515
  Serious: Yes (Hospitalization, Other)
  Sender: FDA-Public Use
  Company Number: ADR-2012-00617

PATIENT
  Sex: Male

DRUGS (3)
  1. BACLOFEN [Suspect]
     Indication: PAIN
  2. PREDNISONE [Concomitant]
  3. MORPHINE [Concomitant]

REACTIONS (18)
  - Fluid retention [None]
  - Device battery issue [None]
  - Cellulitis [None]
  - Thrombosis [None]
  - Device power source issue [None]
  - Blood pressure increased [None]
  - Drug withdrawal syndrome [None]
  - Device malfunction [None]
  - Pancreatitis [None]
  - Ill-defined disorder [None]
  - Drug hypersensitivity [None]
  - Coagulopathy [None]
  - Thrombosis [None]
  - Pain [None]
  - Factor V inhibition [None]
  - Drug hypersensitivity [None]
  - Swelling [None]
  - Hypertension [None]
